FAERS Safety Report 14896183 (Version 1)
Quarter: 2018Q2

REPORT INFORMATION
  Report Type: Spontaneous
  Country: US (occurrence: US)
  Receive Date: 20180426
  Receipt Date: 20180426
  Transmission Date: 20180711
  Serious: Yes (Hospitalization, Other)
  Sender: FDA-Public Use
  Company Number: None

PATIENT
  Age: 34 Year
  Sex: Female
  Weight: 67.5 kg

DRUGS (10)
  1. CLONAZEPAM. [Concomitant]
     Active Substance: CLONAZEPAM
  2. VITAMIN D3 [Concomitant]
     Active Substance: CHOLECALCIFEROL
  3. AMANTADINE. [Concomitant]
     Active Substance: AMANTADINE HYDROCHLORIDE
  4. SEROQUEL [Concomitant]
     Active Substance: QUETIAPINE FUMARATE
  5. FYCOMPA [Suspect]
     Active Substance: PERAMPANEL
     Indication: EPILEPSY
     Dosage: ?          QUANTITY:62 TABLET(S);?
     Route: 048
  6. KEPPRA [Suspect]
     Active Substance: LEVETIRACETAM
     Indication: EPILEPSY
     Dosage: ?          QUANTITY:2 TABLET(S);?
     Route: 048
  7. LAMICTAL [Concomitant]
     Active Substance: LAMOTRIGINE
  8. ONFI [Concomitant]
     Active Substance: CLOBAZAM
  9. PROTONIX [Concomitant]
     Active Substance: PANTOPRAZOLE SODIUM
  10. MIRALAX [Concomitant]
     Active Substance: POLYETHYLENE GLYCOL 3350

REACTIONS (10)
  - Suicide attempt [None]
  - Balance disorder [None]
  - Food refusal [None]
  - Intentional overdose [None]
  - Irritability [None]
  - Tremor [None]
  - Confusional state [None]
  - Intentional self-injury [None]
  - Bruxism [None]
  - Eye disorder [None]

NARRATIVE: CASE EVENT DATE: 20180419
